FAERS Safety Report 7263844-7 (Version None)
Quarter: 2011Q1

REPORT INFORMATION
  Report Type: 
  Country: None (occurrence: None)
  Receive Date: 20110130
  Receipt Date: 20101206
  Transmission Date: 20110831
  Serious: Yes (Other)
  Sender: FDA-Public Use
  Company Number: US-ABBOTT-10P-163-0690007-00

PATIENT
  Age: 22 Year
  Sex: Male
  Weight: 118.04 kg

DRUGS (5)
  1. UNKNOWN [Concomitant]
     Indication: ANTIDEPRESSANT THERAPY
  2. BUSPIRONE [Concomitant]
     Indication: ANXIETY
  3. HUMIRA [Suspect]
     Dates: start: 20090101, end: 20100801
  4. HUMIRA [Suspect]
     Dates: start: 20101101, end: 20101201
  5. HUMIRA [Suspect]
     Indication: PSORIASIS
     Dates: start: 20080101, end: 20090101

REACTIONS (6)
  - DRUG INEFFECTIVE [None]
  - INJECTION SITE OEDEMA [None]
  - PSORIASIS [None]
  - DYSKINESIA [None]
  - INJECTION SITE ERYTHEMA [None]
  - GALLBLADDER PAIN [None]
